FAERS Safety Report 18957398 (Version 1)
Quarter: 2021Q1

REPORT INFORMATION
  Report Type: Spontaneous
  Country: GB (occurrence: GB)
  Receive Date: 20210302
  Receipt Date: 20210302
  Transmission Date: 20210420
  Serious: Yes (Other)
  Sender: FDA-Public Use
  Company Number: NVSC2021GB045694

PATIENT
  Age: 6 Year
  Sex: Male

DRUGS (1)
  1. DABRAFENIB [Suspect]
     Active Substance: DABRAFENIB
     Indication: LANGERHANS^ CELL HISTIOCYTOSIS
     Dosage: 5.25 MG/KG, QD
     Route: 065

REACTIONS (2)
  - Langerhans^ cell histiocytosis [Unknown]
  - Product use in unapproved indication [Unknown]
